FAERS Safety Report 10035594 (Version 1)
Quarter: 2014Q1

REPORT INFORMATION
  Report Type: Spontaneous
  Country: FR (occurrence: FR)
  Receive Date: 20140325
  Receipt Date: 20140325
  Transmission Date: 20141002
  Serious: Yes (Other)
  Sender: FDA-Public Use
  Company Number: FR-TEVA-468814ISR

PATIENT
  Sex: 0

DRUGS (1)
  1. LEELOO [Suspect]

REACTIONS (1)
  - Haemorrhage [Unknown]
